FAERS Safety Report 16031765 (Version 1)
Quarter: 2019Q1

REPORT INFORMATION
  Report Type: Spontaneous
  Country: FR (occurrence: FR)
  Receive Date: 20190304
  Receipt Date: 20190304
  Transmission Date: 20190418
  Serious: Yes (Other)
  Sender: FDA-Public Use
  Company Number: FR-TEVA-2019-FR-1018121

PATIENT
  Age: 69 Year
  Sex: Female

DRUGS (1)
  1. OMEPRAZOLE. [Suspect]
     Active Substance: OMEPRAZOLE
     Indication: PROPHYLAXIS AGAINST GASTROINTESTINAL ULCER
     Dosage: FOR EXAMPLE,
     Route: 048
     Dates: start: 2016

REACTIONS (1)
  - Therapeutic product cross-reactivity [Recovered/Resolved]

NARRATIVE: CASE EVENT DATE: 201806
